FAERS Safety Report 4285379-6 (Version None)
Quarter: 2004Q1

REPORT INFORMATION
  Report Type: 
  Country: None (occurrence: None)
  Receive Date: 20040202
  Receipt Date: 20040121
  Transmission Date: 20041129
  Serious: Yes (Death)
  Sender: FDA-Public Use
  Company Number: 2004194398JP

PATIENT
  Age: 72 Year
  Sex: Female
  Weight: 52 kg

DRUGS (4)
  1. IDAMYCIN [Suspect]
     Indication: MYELODYSPLASTIC SYNDROME
     Dosage: 10 MG, QD, IV
     Route: 042
     Dates: start: 20030719, end: 20030721
  2. CYTARABINE [Suspect]
     Indication: MYELODYSPLASTIC SYNDROME
     Dosage: SEE IMAGE
     Route: 042
     Dates: start: 20030619, end: 20030625
  3. CYTARABINE [Suspect]
     Indication: MYELODYSPLASTIC SYNDROME
     Dosage: SEE IMAGE
     Route: 042
     Dates: start: 20030801, end: 20030805
  4. NOVANTRONE [Suspect]
     Indication: MYELODYSPLASTIC SYNDROME
     Dosage: 6 MG, QD, IV
     Route: 042
     Dates: start: 20030801, end: 20030803

REACTIONS (2)
  - LEUKOENCEPHALOPATHY [None]
  - RESPIRATORY FAILURE [None]
